FAERS Safety Report 11495989 (Version 7)
Quarter: 2017Q2

REPORT INFORMATION
  Report Type: Spontaneous
  Country: US (occurrence: US)
  Receive Date: 20150911
  Receipt Date: 20170411
  Transmission Date: 20170829
  Serious: Yes (Other)
  Sender: FDA-Public Use
  Company Number: US-ASTELLAS-2015US032559

PATIENT
  Sex: Male

DRUGS (2)
  1. XTANDI [Suspect]
     Active Substance: ENZALUTAMIDE
     Indication: PROSTATE CANCER
     Route: 048
     Dates: start: 20150819
  2. XTANDI [Suspect]
     Active Substance: ENZALUTAMIDE
     Route: 048
     Dates: start: 20160929

REACTIONS (9)
  - Chest pain [Unknown]
  - Fatigue [Unknown]
  - Pancreatic carcinoma [Not Recovered/Not Resolved]
  - Weight decreased [Unknown]
  - Product lot number issue [Unknown]
  - Product expiration date issue [Unknown]
  - Medication residue present [Unknown]
  - Prostatic specific antigen increased [Unknown]
  - Product counterfeit [Unknown]
